FAERS Safety Report 11789450 (Version 1)
Quarter: 2015Q4

REPORT INFORMATION
  Report Type: Report from Study
  Country: US (occurrence: US)
  Receive Date: 20151201
  Receipt Date: 20151201
  Transmission Date: 20160305
  Serious: Yes (Hospitalization)
  Sender: FDA-Public Use
  Company Number: US-JNJFOC-20150922713

PATIENT
  Age: 63 Year
  Sex: Female
  Weight: 94.35 kg

DRUGS (15)
  1. GABAPENTIN. [Concomitant]
     Active Substance: GABAPENTIN
     Indication: NEUROPATHY PERIPHERAL
     Dosage: IN THE MORNING.
     Route: 048
  2. TRIAMHEXAL [Concomitant]
     Active Substance: TRIAMCINOLONE
     Indication: RESTLESS LEGS SYNDROME
     Route: 048
     Dates: start: 2014
  3. LEVOTHYROXINE. [Concomitant]
     Active Substance: LEVOTHYROXINE
     Indication: HYPOTHYROIDISM
     Route: 048
  4. LEVEMIR [Concomitant]
     Active Substance: INSULIN DETEMIR
     Indication: GLYCOSYLATED HAEMOGLOBIN DECREASED
     Route: 058
     Dates: start: 2014
  5. OMEPRAZOLE. [Concomitant]
     Active Substance: OMEPRAZOLE
     Indication: ULCER
     Route: 048
     Dates: start: 1995
  6. CYCLOBENZAPRINE [Concomitant]
     Active Substance: CYCLOBENZAPRINE
     Indication: MUSCLE SPASMS
     Route: 048
     Dates: start: 1994
  7. PRAMIPEXOLE. [Concomitant]
     Active Substance: PRAMIPEXOLE
     Route: 065
  8. SIMVASTATIN. [Concomitant]
     Active Substance: SIMVASTATIN
     Indication: BLOOD CHOLESTEROL
     Route: 048
     Dates: start: 2003
  9. FENOFIBRATE. [Concomitant]
     Active Substance: FENOFIBRATE
     Indication: BLOOD CHOLESTEROL INCREASED
     Route: 048
     Dates: start: 2014
  10. DULOXETINE. [Concomitant]
     Active Substance: DULOXETINE
     Indication: NEUROPATHY PERIPHERAL
     Route: 048
     Dates: start: 2012
  11. HYDROCODONE [Concomitant]
     Active Substance: HYDROCODONE
     Indication: PAIN
     Dosage: 10/25 MG-20/50 MG AS NEEDED.
     Route: 048
     Dates: start: 1994
  12. INVOKANA [Suspect]
     Active Substance: CANAGLIFLOZIN
     Indication: GLYCOSYLATED HAEMOGLOBIN DECREASED
     Route: 048
     Dates: start: 201509
  13. TRIAMTERENE/HYDROCHLOROTHIAZIDE [Concomitant]
     Active Substance: HYDROCHLOROTHIAZIDE\TRIAMTERENE
     Indication: FLUID RETENTION
     Dosage: DOSE WAS 75/50 MG.
     Route: 048
     Dates: start: 1975
  14. NOVOLOG [Concomitant]
     Active Substance: INSULIN ASPART
     Indication: GLYCOSYLATED HAEMOGLOBIN DECREASED
     Route: 058
     Dates: start: 2013
  15. METFORMIN [Concomitant]
     Active Substance: METFORMIN HYDROCHLORIDE
     Indication: DIABETES MELLITUS
     Route: 048
     Dates: start: 2000

REACTIONS (6)
  - Urinary incontinence [Not Recovered/Not Resolved]
  - Blood potassium decreased [Unknown]
  - Pancreatitis [Unknown]
  - Rash [Not Recovered/Not Resolved]
  - Product use issue [Not Recovered/Not Resolved]
  - Cholelithiasis [Unknown]

NARRATIVE: CASE EVENT DATE: 201509
